FAERS Safety Report 5179104-4 (Version None)
Quarter: 2006Q4

REPORT INFORMATION
  Report Type: 
  Country: None (occurrence: None)
  Receive Date: 20061214
  Receipt Date: 20061214
  Transmission Date: 20070319
  Serious: Yes (Hospitalization)
  Sender: FDA-Public Use
  Company Number: None

PATIENT
  Age: 88 Year
  Sex: Male
  Weight: 83.5 kg

DRUGS (9)
  1. HYDROCHLOROTHIAZIDE [Suspect]
     Dosage: 12.5MG QD BY MOUTH
     Route: 048
     Dates: start: 20050912, end: 20051128
  2. LISINOPRIL [Suspect]
     Dosage: 10MG  QDBY MOUTH (PO)
     Route: 048
     Dates: start: 20051005, end: 20051128
  3. MECLIZINE HCL [Concomitant]
  4. SERTRALINE HCL [Concomitant]
  5. METOPROLOL TARTRATE [Concomitant]
  6. TERAZOSIN HCL [Concomitant]
  7. TIMOLOL MALEATE [Concomitant]
  8. TRAVOPROST [Concomitant]
  9. PRILOSEC [Concomitant]

REACTIONS (2)
  - ABDOMINAL DISCOMFORT [None]
  - PANCREATITIS [None]
